FAERS Safety Report 24575256 (Version 2)
Quarter: 2024Q4

REPORT INFORMATION
  Report Type: Spontaneous
  Country: FI (occurrence: FI)
  Receive Date: 20241104
  Receipt Date: 20241122
  Transmission Date: 20250114
  Serious: Yes (Hospitalization)
  Sender: SANOFI AVENTIS
  Company Number: FI-SANOFI-02276378

PATIENT
  Age: 64 Year
  Sex: Female

DRUGS (4)
  1. LANTUS [Suspect]
     Active Substance: INSULIN GLARGINE
     Indication: Diabetes mellitus
     Dosage: 20 IU
     Route: 065
  2. LANTUS [Suspect]
     Active Substance: INSULIN GLARGINE
     Dosage: 8 UNITS , QD IN THE MORNING
     Route: 065
  3. VITAMIN B [Concomitant]
     Active Substance: VITAMIN B
  4. HISTAMINE [Concomitant]
     Active Substance: HISTAMINE
     Indication: Seasonal allergy

REACTIONS (10)
  - Fall [Unknown]
  - Blood glucose fluctuation [Unknown]
  - Asthenia [Unknown]
  - Dizziness [Unknown]
  - Movement disorder [Unknown]
  - Abdominal discomfort [Unknown]
  - Rectal tenesmus [Unknown]
  - Skin haemorrhage [Unknown]
  - Limb operation [Unknown]
  - Off label use [Unknown]

NARRATIVE: CASE EVENT DATE: 20240101
